FAERS Safety Report 5686971-4 (Version None)
Quarter: 2008Q1

REPORT INFORMATION
  Report Type: 
  Country: None (occurrence: None)
  Receive Date: 20080328
  Receipt Date: 20070625
  Transmission Date: 20080703
  Serious: No
  Sender: FDA-Public Use
  Company Number: US-BAYER-US-2007-023732

PATIENT
  Age: 35 Year
  Sex: Female
  Weight: 76 kg

DRUGS (3)
  1. MIRENA [Suspect]
     Indication: CONTRACEPTION
     Route: 015
     Dates: start: 20070604
  2. BACLOFEN [Concomitant]
  3. TOPAMAX [Concomitant]

REACTIONS (8)
  - ACNE [None]
  - ALOPECIA [None]
  - BACK PAIN [None]
  - HEADACHE [None]
  - MOOD SWINGS [None]
  - NAUSEA [None]
  - SYNCOPE VASOVAGAL [None]
  - WEIGHT INCREASED [None]
